FAERS Safety Report 6471330-7 (Version None)
Quarter: 2009Q4

REPORT INFORMATION
  Report Type: 
  Country: None (occurrence: None)
  Receive Date: 20091203
  Receipt Date: 20080205
  Transmission Date: 20100525
  Serious: Yes (Hospitalization)
  Sender: FDA-Public Use
  Company Number: TR-ELI_LILLY_AND_COMPANY-TR200802003124

PATIENT
  Sex: Male
  Weight: 85 kg

DRUGS (5)
  1. HUMALOG MIX 75/25 [Suspect]
     Indication: TYPE 2 DIABETES MELLITUS
     Route: 058
     Dates: start: 20071101
  2. HUMALOG MIX 75/25 [Suspect]
     Dosage: 16 IU, EACH EVENING
     Route: 058
     Dates: start: 20071101
  3. BELOC ZOK [Concomitant]
     Indication: CARDIOVASCULAR DISORDER
     Route: 048
     Dates: start: 20040101
  4. DELIX [Concomitant]
     Indication: HYPERTENSION
     Dosage: UNK, UNK
     Route: 048
     Dates: start: 20040101
  5. LIPITOR [Concomitant]
     Indication: CARDIOVASCULAR DISORDER
     Dosage: UNK, UNK
     Route: 048
     Dates: start: 20040101

REACTIONS (2)
  - BLOOD GLUCOSE INCREASED [None]
  - BRAIN NEOPLASM [None]
